FAERS Safety Report 9063051 (Version 1)
Quarter: 2013Q1

REPORT INFORMATION
  Report Type: Spontaneous
  Country: US (occurrence: US)
  Receive Date: 20130213
  Receipt Date: 20130213
  Transmission Date: 20140127
  Serious: Yes (Hospitalization)
  Sender: FDA-Public Use
  Company Number: US-BAYER-2013-016432

PATIENT
  Age: 23 Year
  Sex: Female
  Weight: 117.46 kg

DRUGS (17)
  1. YASMIN [Suspect]
     Indication: DYSMENORRHOEA
  2. SINGULAIR [Concomitant]
     Indication: ASTHMA
     Dosage: 10 MG, UNK
     Dates: start: 20040729
  3. SINGULAIR [Concomitant]
     Indication: MULTIPLE ALLERGIES
  4. BENTYL [Concomitant]
     Dosage: 10 MG, UNK
     Dates: start: 20040729
  5. TOPROL XL [Concomitant]
     Dosage: 50 MG, UNK
     Dates: start: 20040701
  6. PAXIL CR [Concomitant]
     Dosage: 25 MG, UNK
     Dates: start: 20040719
  7. ZYRTEC [Concomitant]
     Dosage: 10 MG, UNK
     Dates: start: 20040729
  8. TRAZODONE [Concomitant]
     Dosage: 50 MG, UNK
     Dates: start: 20040625
  9. ALBUTEROL [Concomitant]
     Dosage: UNK
     Route: 045
  10. ZELNORM [Concomitant]
     Dosage: 6 MG, UNK
     Dates: start: 20040709
  11. FUROSEMIDE [Concomitant]
     Dosage: 20 MG, UNK
     Dates: start: 20040726
  12. POTASSIUM CHLORIDE [Concomitant]
     Dosage: 10 MEQ, UNK
     Dates: start: 20040803
  13. ALPRAZOLAM [Concomitant]
     Dosage: 0.5 MG, UNK
     Dates: start: 20040820
  14. METHYLPREDNISOLONE [Concomitant]
     Dosage: 4 MG, UNK
     Dates: start: 20040909
  15. NAPROXEN [Concomitant]
     Dosage: 500 MG, UNK
     Dates: start: 20040909
  16. HYDROCODONE/ACETAMINOPHEN [Concomitant]
     Dosage: 5 MG, UNK
     Dates: start: 20040909
  17. HYDROCODONE/ACETAMINOPHEN [Concomitant]
     Dosage: 500 MG, UNK
     Dates: start: 20040909

REACTIONS (2)
  - Pulmonary embolism [Recovering/Resolving]
  - Deep vein thrombosis [Recovered/Resolved]
